FAERS Safety Report 7808009-2 (Version None)
Quarter: 2011Q4

REPORT INFORMATION
  Report Type: 
  Country: None (occurrence: None)
  Receive Date: 20111011
  Receipt Date: 20111011
  Transmission Date: 20120403
  Serious: Yes (Hospitalization)
  Sender: FDA-Public Use
  Company Number: None

PATIENT
  Age: 24 Year
  Sex: Male
  Weight: 80 kg

DRUGS (2)
  1. PROZAC [Concomitant]
     Dosage: 40MG
     Route: 048
  2. ZOLOFT [Suspect]
     Dosage: 100MG
     Route: 048

REACTIONS (4)
  - ANXIETY [None]
  - HEADACHE [None]
  - SUICIDAL IDEATION [None]
  - FEELING ABNORMAL [None]
